FAERS Safety Report 4749014-2 (Version None)
Quarter: 2005Q3

REPORT INFORMATION
  Report Type: 
  Country: None (occurrence: None)
  Receive Date: 20050817
  Receipt Date: 20050805
  Transmission Date: 20060218
  Serious: Yes (Life-Threatening)
  Sender: FDA-Public Use
  Company Number: 2005112260

PATIENT
  Age: 82 Year
  Sex: Female

DRUGS (13)
  1. AMLODIPINE [Suspect]
     Indication: HYPERTENSION
     Dosage: 2.5 MG (2.5 MG, 1 IN 1 D), ORAL
     Route: 048
     Dates: start: 20030904
  2. AMLODIPINE [Suspect]
     Indication: HYPERTENSION
     Dosage: 2.5 MG (2.5 MG, 1 IN 1 D), ORAL
     Route: 048
     Dates: start: 20050426
  3. MUCOSTA (REBAMIPIDE) [Concomitant]
  4. EXCELASE (ENZYMES NOS) [Concomitant]
  5. NE (TOCOPHERYL NICOTINATE) [Concomitant]
  6. MAGNESIUM OXIDE (MAGNESIUM OXIDE) [Concomitant]
  7. ASPIRIN [Concomitant]
  8. BIOFERMIN (BACILLUS SUBTILIS, LACTOBACILLUS ACIDOPHILUS, STREPTOCOCCUS [Concomitant]
  9. GABALON (BACLOFEN) [Concomitant]
  10. YODEL (SENNA) [Concomitant]
  11. INDOMETHACIN [Concomitant]
  12. PERMAX [Concomitant]
  13. MUSCALM (TOLPERISONE HYDROCHLORIDE) [Concomitant]

REACTIONS (3)
  - FATIGUE [None]
  - FEELING ABNORMAL [None]
  - HYPOGLYCAEMIA [None]
